FAERS Safety Report 20342950 (Version 2)
Quarter: 2022Q1

REPORT INFORMATION
  Report Type: Report from Study
  Country: CN (occurrence: CN)
  Receive Date: 20220117
  Receipt Date: 20220121
  Transmission Date: 20220423
  Serious: Yes (Other)
  Sender: FDA-Public Use
  Company Number: CN-BRISTOL-MYERS SQUIBB COMPANY-BMS-2022-001521

PATIENT
  Age: 58 Year
  Sex: Female

DRUGS (1)
  1. NIVOLUMAB [Suspect]
     Active Substance: NIVOLUMAB
     Indication: Gastric cancer
     Dosage: 126 MILLIGRAM, Q2WK
     Route: 041
     Dates: start: 20211026

REACTIONS (4)
  - Epilepsy [Unknown]
  - Metastases to central nervous system [Unknown]
  - Visual impairment [Unknown]
  - General physical health deterioration [Unknown]
